FAERS Safety Report 9229537 (Version 1)
Quarter: 2013Q2

REPORT INFORMATION
  Report Type: Spontaneous
  Country: DE (occurrence: DE)
  Receive Date: 20130413
  Receipt Date: 20130413
  Transmission Date: 20140414
  Serious: Yes (Other)
  Sender: FDA-Public Use
  Company Number: DE-AMGEN-DEUSP2013025553

PATIENT
  Age: 52 Year
  Sex: Female

DRUGS (3)
  1. ENBREL [Suspect]
     Indication: PSORIATIC ARTHROPATHY
     Dosage: 50 MG, WEEKLY
     Dates: start: 20090929, end: 2012
  2. NOVALGINE [Concomitant]
     Dosage: UNK, AS NEEDED
  3. ASS [Concomitant]
     Dosage: UNK, AS NEEDED

REACTIONS (1)
  - Mental disorder [Unknown]
